FAERS Safety Report 9991471 (Version 1)
Quarter: 2014Q1

REPORT INFORMATION
  Report Type: Report from Study
  Country: US (occurrence: US)
  Receive Date: 20140310
  Receipt Date: 20140310
  Transmission Date: 20141002
  Serious: No
  Sender: FDA-Public Use
  Company Number: US-ABBVIE-13P-163-1133577-00

PATIENT
  Age: 32 Year
  Sex: Female

DRUGS (4)
  1. HUMIRA [Suspect]
     Indication: CROHN^S DISEASE
     Dates: start: 201306
  2. IMURAN [Concomitant]
     Indication: CROHN^S DISEASE
  3. GABAPENTIN [Concomitant]
     Indication: INSOMNIA
  4. ALBUTEROL [Concomitant]
     Indication: ASTHMA
     Dosage: INHALER

REACTIONS (3)
  - Oropharyngeal pain [Not Recovered/Not Resolved]
  - Pyrexia [Not Recovered/Not Resolved]
  - Diarrhoea [Not Recovered/Not Resolved]
